FAERS Safety Report 10732290 (Version 1)
Quarter: 2015Q1

REPORT INFORMATION
  Report Type: Spontaneous
  Country: KR (occurrence: KR)
  Receive Date: 20150123
  Receipt Date: 20150123
  Transmission Date: 20150721
  Serious: Yes (Other)
  Sender: FDA-Public Use
  Company Number: KR-SA-2015SA008033

PATIENT
  Age: 36 Year
  Sex: Male

DRUGS (1)
  1. CLOPIDOGREL BISULFATE. [Suspect]
     Active Substance: CLOPIDOGREL BISULFATE
     Indication: ANTICOAGULANT THERAPY
     Route: 065

REACTIONS (4)
  - Acute respiratory failure [Recovering/Resolving]
  - Dyspnoea [Recovering/Resolving]
  - Tracheal haemorrhage [Recovering/Resolving]
  - Pulmonary alveolar haemorrhage [Recovering/Resolving]
